FAERS Safety Report 17932225 (Version 1)
Quarter: 2020Q2

REPORT INFORMATION
  Report Type: Spontaneous
  Country: CA (occurrence: CA)
  Receive Date: 20200624
  Receipt Date: 20200624
  Transmission Date: 20200714
  Serious: Yes (Other)
  Sender: FDA-Public Use
  Company Number: CA-AUROBINDO-AUR-APL-2020-030237

PATIENT
  Age: 83 Year
  Sex: Male

DRUGS (1)
  1. CLINDAMYCIN. [Suspect]
     Active Substance: CLINDAMYCIN
     Indication: SKIN INFECTION
     Dosage: 300 MILLIGRAM, FOUR TIMES/DAY
     Route: 048

REACTIONS (2)
  - Oesophageal irritation [Unknown]
  - Foreign body in throat [Unknown]
